FAERS Safety Report 13705129 (Version 1)
Quarter: 2017Q2

REPORT INFORMATION
  Report Type: Spontaneous
  Country: US (occurrence: US)
  Receive Date: 20170629
  Receipt Date: 20170629
  Transmission Date: 20170830
  Serious: Yes (Other)
  Sender: FDA-Public Use
  Company Number: None

PATIENT
  Age: 48 Year
  Sex: Male
  Weight: 79.65 kg

DRUGS (4)
  1. ASA [Concomitant]
     Active Substance: ASPIRIN
  2. COZAAR [Concomitant]
     Active Substance: LOSARTAN POTASSIUM
  3. VALTREX [Suspect]
     Active Substance: VALACYCLOVIR HYDROCHLORIDE
     Indication: VIRAL INFECTION
     Dosage: ?          OTHER STRENGTH:GM;QUANTITY:1 TABLET(S);?
     Route: 048
     Dates: start: 20170622, end: 20170624
  4. ATENOLOL. [Concomitant]
     Active Substance: ATENOLOL

REACTIONS (4)
  - Chest pain [None]
  - Heart rate increased [None]
  - Palpitations [None]
  - Dyspnoea [None]

NARRATIVE: CASE EVENT DATE: 20170624
